FAERS Safety Report 14079137 (Version 1)
Quarter: 2017Q4

REPORT INFORMATION
  Report Type: Spontaneous
  Country: US (occurrence: US)
  Receive Date: 20171012
  Receipt Date: 20171012
  Transmission Date: 20180321
  Serious: No
  Sender: FDA-Public Use
  Company Number: US-MYLANLABS-2017M1026096

PATIENT
  Sex: Male

DRUGS (3)
  1. PREDNISONE TABLETS USP [Suspect]
     Active Substance: PREDNISONE
     Indication: RESPIRATORY TRACT INFECTION
     Dosage: 3 DF, QD FOR 4 DAYS
     Route: 048
     Dates: start: 20170425, end: 201704
  2. PREDNISONE TABLETS USP [Suspect]
     Active Substance: PREDNISONE
     Indication: RESPIRATORY TRACT INFLAMMATION
     Dosage: 1 DF, QD
     Route: 048
     Dates: start: 201704, end: 20170426
  3. AZITHROMYCIN ANHYDROUS. [Concomitant]
     Active Substance: AZITHROMYCIN ANHYDROUS
     Indication: PRODUCT USED FOR UNKNOWN INDICATION
     Dosage: 500 MG, UNK

REACTIONS (1)
  - Feeling abnormal [Not Recovered/Not Resolved]
